FAERS Safety Report 6142218-6 (Version None)
Quarter: 2009Q2

REPORT INFORMATION
  Report Type: 
  Country: None (occurrence: None)
  Receive Date: 20090403
  Receipt Date: 20071112
  Transmission Date: 20091009
  Serious: Yes (Hospitalization)
  Sender: FDA-Public Use
  Company Number: US-ASTRAZENECA-2007UW14135

PATIENT
  Age: 14186 Day
  Sex: Male

DRUGS (14)
  1. SEROQUEL [Suspect]
     Indication: SLEEP DISORDER
     Route: 048
     Dates: start: 20030101, end: 20060501
  2. SEROQUEL [Suspect]
     Dosage: 300MG TO 1200MG
     Route: 048
     Dates: start: 20021105, end: 20060501
  3. COLCHICINE [Concomitant]
  4. TRILEPTAL [Concomitant]
  5. CLONAZEPAM [Concomitant]
  6. ALLOPURINOL [Concomitant]
  7. INDOMETHACIN [Concomitant]
  8. HUMULINE R [Concomitant]
  9. AMBIEN [Concomitant]
  10. ACETAMINOPHEN AND HYDROCODONE BITARTRATE [Concomitant]
  11. ALPRAZOLAM [Concomitant]
  12. LANTUS [Concomitant]
  13. ZOLOFT [Concomitant]
  14. TOPAMAX [Concomitant]

REACTIONS (7)
  - AGORAPHOBIA [None]
  - HALLUCINATION, AUDITORY [None]
  - PANIC ATTACK [None]
  - POST-TRAUMATIC STRESS DISORDER [None]
  - SLEEP DISORDER [None]
  - SUICIDAL IDEATION [None]
  - TYPE 1 DIABETES MELLITUS [None]
